FAERS Safety Report 5418326-1 (Version None)
Quarter: 2007Q3

REPORT INFORMATION
  Report Type: 
  Country: None (occurrence: None)
  Receive Date: 20070817
  Receipt Date: 20070808
  Transmission Date: 20080115
  Serious: Yes (Hospitalization)
  Sender: FDA-Public Use
  Company Number: FR-BRISTOL-MYERS SQUIBB COMPANY-13878137

PATIENT
  Age: 17 Year
  Sex: Female

DRUGS (12)
  1. HOLOXAN [Suspect]
     Indication: HODGKIN'S DISEASE
     Route: 042
     Dates: start: 20070522, end: 20070527
  2. ETOPOSIDE [Suspect]
     Indication: HODGKIN'S DISEASE
     Route: 042
     Dates: start: 20070522, end: 20070527
  3. NAVELBINE [Suspect]
     Indication: HODGKIN'S DISEASE
     Route: 042
     Dates: start: 20070522, end: 20070527
  4. MITOGUAZONE [Suspect]
     Indication: HODGKIN'S DISEASE
     Route: 042
     Dates: start: 20070522, end: 20070527
  5. AMIKLIN [Suspect]
     Route: 042
     Dates: start: 20070529, end: 20070612
  6. CEFTAZIDIME [Suspect]
     Route: 042
     Dates: start: 20070529, end: 20070603
  7. BACTRIM [Suspect]
     Route: 042
     Dates: start: 20070529, end: 20070601
  8. VANCOMYCIN [Suspect]
     Route: 042
     Dates: start: 20070529, end: 20070612
  9. SYMBICORT [Concomitant]
  10. BRICANYL [Concomitant]
  11. DESLORATADINE [Concomitant]
  12. SINGULAIR [Concomitant]

REACTIONS (8)
  - ASTHENIA [None]
  - OEDEMA [None]
  - OEDEMA PERIPHERAL [None]
  - PAIN IN EXTREMITY [None]
  - PARAESTHESIA [None]
  - PURPURA [None]
  - RASH ERYTHEMATOUS [None]
  - TACHYCARDIA [None]
